FAERS Safety Report 17906726 (Version 1)
Quarter: 2020Q2

REPORT INFORMATION
  Report Type: Spontaneous
  Country: FR (occurrence: FR)
  Receive Date: 20200617
  Receipt Date: 20200617
  Transmission Date: 20200714
  Serious: Yes (Death)
  Sender: FDA-Public Use
  Company Number: NVSC2020FR168199

PATIENT
  Sex: Female

DRUGS (1)
  1. TEGRETOL [Suspect]
     Active Substance: CARBAMAZEPINE
     Indication: FOETAL EXPOSURE DURING PREGNANCY
     Dosage: 700 MG, QD (LAST DOSE ADMINISTERED 11 FEB 2020)
     Route: 064

REACTIONS (4)
  - Foetal growth restriction [Fatal]
  - Neonatal multi-organ failure [Fatal]
  - Premature baby [Fatal]
  - Bradycardia neonatal [Fatal]

NARRATIVE: CASE EVENT DATE: 20200117
